FAERS Safety Report 9624077 (Version 1)
Quarter: 2013Q4

REPORT INFORMATION
  Report Type: Spontaneous
  Country: US (occurrence: US)
  Receive Date: 20131015
  Receipt Date: 20131015
  Transmission Date: 20140711
  Serious: No
  Sender: FDA-Public Use
  Company Number: US-UPSHER-SMITH LABORATORIES, INC.-13000284

PATIENT
  Age: 84 Year
  Sex: Female

DRUGS (5)
  1. POTASSIUM CHLORIDE MICRO-DISPERSIBLE [Suspect]
     Indication: PRODUCT USED FOR UNKNOWN INDICATION
     Dosage: 100 MEQ, QD
     Dates: start: 20130111, end: 201301
  2. XANAX [Concomitant]
     Indication: ANXIETY
     Dosage: UNK
  3. VITAMIN B12                        /00056201/ [Concomitant]
     Dosage: UNK
  4. LEVOTHYROXINE [Concomitant]
     Indication: HYPOTHYROIDISM
     Dosage: UNK
  5. EDECRIN                            /00020501/ [Concomitant]
     Dosage: UNK

REACTIONS (4)
  - Reaction to drug excipients [Recovered/Resolved]
  - Urticaria [Recovered/Resolved]
  - Palpitations [Recovered/Resolved]
  - Dysphonia [Recovered/Resolved]
